FAERS Safety Report 17093449 (Version 1)
Quarter: 2019Q4

REPORT INFORMATION
  Report Type: Spontaneous
  Country: FR (occurrence: FR)
  Receive Date: 20191129
  Receipt Date: 20191129
  Transmission Date: 20200122
  Serious: Yes (Death, Hospitalization)
  Sender: FDA-Public Use
  Company Number: NVSC2019FR047320

PATIENT
  Age: 68 Year
  Sex: Female
  Weight: 84 kg

DRUGS (19)
  1. ACITRETIN. [Suspect]
     Active Substance: ACITRETIN
     Indication: PRODUCT USED FOR UNKNOWN INDICATION
     Dosage: 25 MG, QD
     Route: 048
     Dates: start: 20160704, end: 20160909
  2. STELARA [Suspect]
     Active Substance: USTEKINUMAB
     Dosage: 90 MG, CYCLIC (90 MG, CYCLIC EVERY 10 WEEKS)
     Route: 058
     Dates: start: 20171027, end: 20180126
  3. STRESAM [Concomitant]
     Active Substance: ETIFOXINE
     Indication: PRODUCT USED FOR UNKNOWN INDICATION
     Dosage: UNK
     Route: 065
     Dates: start: 20180123
  4. STELARA [Suspect]
     Active Substance: USTEKINUMAB
     Indication: PRODUCT USED FOR UNKNOWN INDICATION
     Dosage: 90 MG, CYCLIC (90 MG, CYCLIC EVERY 4 WEEKS)
     Route: 058
     Dates: start: 20170728, end: 20170828
  5. LOCAPRED [Concomitant]
     Active Substance: DESONIDE
     Indication: PRODUCT USED FOR UNKNOWN INDICATION
     Dosage: UNK
     Route: 065
     Dates: start: 20180323
  6. GLYCEROTONE [Concomitant]
     Indication: PRODUCT USED FOR UNKNOWN INDICATION
     Dosage: UNK
     Route: 065
     Dates: start: 20180323
  7. STELARA [Suspect]
     Active Substance: USTEKINUMAB
     Dosage: 90 MG, CYCLIC (90 MG, CYCLIC EVERY 12 WEEKS)
     Route: 058
     Dates: start: 20170828, end: 20171027
  8. DAIVOBET [Concomitant]
     Active Substance: BETAMETHASONE DIPROPIONATE\CALCIPOTRIENE
     Indication: PRODUCT USED FOR UNKNOWN INDICATION
     Dosage: UNK
     Route: 065
     Dates: start: 20151126
  9. KARDEGIC [Concomitant]
     Active Substance: ASPIRIN DL-LYSINE
     Indication: PRODUCT USED FOR UNKNOWN INDICATION
     Dosage: 75 MG, QD (75 MG, 1X/DAY)
     Route: 048
     Dates: start: 20130620
  10. ACITRETIN. [Suspect]
     Active Substance: ACITRETIN
     Dosage: 10 MG, QD (10 MG, 1X/DAY)
     Route: 048
     Dates: start: 20170728, end: 20180126
  11. ACITRETIN. [Suspect]
     Active Substance: ACITRETIN
     Dosage: 20 MG, QD (20 MG, 1X/DAY)
     Route: 048
     Dates: start: 20180126, end: 20180323
  12. STELARA [Suspect]
     Active Substance: USTEKINUMAB
     Dosage: 90 MG, CYCLIC (90 MG, CYCLIC EVERY 8 WEEKS)
     Route: 058
     Dates: start: 20180126, end: 20180323
  13. CYCLOSPORINE. [Suspect]
     Active Substance: CYCLOSPORINE
     Indication: PRODUCT USED FOR UNKNOWN INDICATION
     Dosage: 15 MG, QW (15 MG, WEEKLY)
     Route: 058
     Dates: start: 20180323
  14. FLECAINE [Concomitant]
     Active Substance: FLECAINIDE
     Indication: PRODUCT USED FOR UNKNOWN INDICATION
     Dosage: UNK
     Route: 065
     Dates: start: 20170728
  15. ENBREL [Suspect]
     Active Substance: ETANERCEPT
     Indication: PSORIASIS
     Dosage: 50 MG, QW (50 MG, WEEKLY)
     Route: 058
     Dates: start: 20141002, end: 20150323
  16. METHOTREXATE SODIUM. [Suspect]
     Active Substance: METHOTREXATE SODIUM
     Indication: PRODUCT USED FOR UNKNOWN INDICATION
     Dosage: UNK
     Route: 065
     Dates: start: 20180717, end: 20181009
  17. ECO [Concomitant]
     Indication: PRODUCT USED FOR UNKNOWN INDICATION
     Dosage: UNK
     Route: 065
     Dates: start: 20180323, end: 201804
  18. COLD CREAM [Concomitant]
     Indication: PRODUCT USED FOR UNKNOWN INDICATION
     Dosage: UNK
     Route: 065
     Dates: start: 20150408
  19. DERMOVAL [Concomitant]
     Indication: PRODUCT USED FOR UNKNOWN INDICATION
     Dosage: UNK
     Route: 065
     Dates: start: 20150408

REACTIONS (5)
  - Psoriasis [Recovering/Resolving]
  - Cutaneous T-cell lymphoma [Not Recovered/Not Resolved]
  - Dermatitis exfoliative generalised [Fatal]
  - Drug ineffective [Recovering/Resolving]
  - Pruritus [Recovering/Resolving]

NARRATIVE: CASE EVENT DATE: 20150330
